FAERS Safety Report 25763627 (Version 1)
Quarter: 2025Q3

REPORT INFORMATION
  Report Type: Spontaneous
  Country: US (occurrence: US)
  Receive Date: 20250905
  Receipt Date: 20250905
  Transmission Date: 20251020
  Serious: No
  Sender: DOMPE FARMACEUTICI
  Company Number: US-FARMAPROD-202410-3555

PATIENT
  Age: 74 Year
  Sex: Male

DRUGS (17)
  1. OXERVATE [Suspect]
     Active Substance: CENEGERMIN-BKBJ
     Indication: Neurotrophic keratopathy
     Route: 047
     Dates: start: 20241002
  2. OMEPRAZOLE [Concomitant]
     Active Substance: OMEPRAZOLE
  3. SILDENAFIL CITRATE [Concomitant]
     Active Substance: SILDENAFIL CITRATE
  4. TYLENOL [Concomitant]
     Active Substance: ACETAMINOPHEN
  5. DIFLUPREDNATE [Concomitant]
     Active Substance: DIFLUPREDNATE
  6. BRINZOLAMIDE [Concomitant]
     Active Substance: BRINZOLAMIDE
  7. BRIMONIDINE TARTRATE [Concomitant]
     Active Substance: BRIMONIDINE TARTRATE
  8. VITAMINS [Concomitant]
     Active Substance: VITAMINS
  9. PYRIDOXINE [Concomitant]
     Active Substance: PYRIDOXINE
  10. POTASSIUM [Concomitant]
     Active Substance: POTASSIUM
  11. VITAMIN D3 [Concomitant]
     Active Substance: CHOLECALCIFEROL
  12. MAGNESIUM [Concomitant]
     Active Substance: MAGNESIUM
  13. FISH OIL [Concomitant]
     Active Substance: FISH OIL
  14. CHLORTHALIDONE [Concomitant]
     Active Substance: CHLORTHALIDONE
  15. ATORVASTATIN CALCIUM [Concomitant]
     Active Substance: ATORVASTATIN CALCIUM
  16. METOPROLOL SUCCINATE [Concomitant]
     Active Substance: METOPROLOL SUCCINATE
  17. ELIQUIS [Concomitant]
     Active Substance: APIXABAN

REACTIONS (1)
  - Therapy interrupted [Unknown]

NARRATIVE: CASE EVENT DATE: 20241003
